FAERS Safety Report 8135269-3 (Version None)
Quarter: 2012Q1

REPORT INFORMATION
  Report Type: 
  Country: None (occurrence: None)
  Receive Date: 20120214
  Receipt Date: 20120206
  Transmission Date: 20120608
  Serious: Yes (Other)
  Sender: FDA-Public Use
  Company Number: CZ-GENZYME-CLOF-1002038

PATIENT

DRUGS (3)
  1. EVOLTRA [Suspect]
     Indication: ACUTE MYELOID LEUKAEMIA RECURRENT
     Dosage: 40 MG/M2, QD
     Route: 042
  2. POSACONAZOLE [Concomitant]
     Indication: PROPHYLAXIS
     Dosage: UNK
     Route: 065
  3. COTRIM [Concomitant]
     Indication: PROPHYLAXIS
     Dosage: UNK
     Route: 065

REACTIONS (5)
  - FEBRILE NEUTROPENIA [None]
  - NEUTROPENIA [None]
  - LYMPHOPENIA [None]
  - ACUTE MYELOID LEUKAEMIA RECURRENT [None]
  - THROMBOCYTOPENIA [None]
